FAERS Safety Report 7295409-5 (Version None)
Quarter: 2011Q1

REPORT INFORMATION
  Report Type: 
  Country: None (occurrence: None)
  Receive Date: 20110207
  Receipt Date: 20110121
  Transmission Date: 20110831
  Serious: Yes (Hospitalization)
  Sender: FDA-Public Use
  Company Number: 2011SA007053

PATIENT
  Age: 79 Year
  Sex: Female

DRUGS (4)
  1. MOVICOLON [Concomitant]
  2. MINIRIN [Suspect]
     Indication: HYPERTONIC BLADDER
     Dosage: 0.2 MILLIGRAM(S);DAILY;ORAL
     Route: 048
  3. THYROXIN [Concomitant]
  4. PREV MEDS [Concomitant]

REACTIONS (6)
  - AORTIC ARTERIOSCLEROSIS [None]
  - AORTIC STENOSIS [None]
  - CARDIAC MURMUR [None]
  - INAPPROPRIATE ANTIDIURETIC HORMONE SECRETION [None]
  - ABDOMINAL PAIN UPPER [None]
  - BLOOD PRESSURE INCREASED [None]
